FAERS Safety Report 6866011-1 (Version None)
Quarter: 2010Q3

REPORT INFORMATION
  Report Type: 
  Country: None (occurrence: None)
  Receive Date: 20100722
  Receipt Date: 20100712
  Transmission Date: 20110219
  Serious: Yes (Other)
  Sender: FDA-Public Use
  Company Number: DE-JNJFOC-20100405644

PATIENT
  Age: 63 Year
  Sex: Female
  Weight: 75 kg

DRUGS (7)
  1. SIMPONI [Suspect]
     Indication: RHEUMATOID ARTHRITIS
     Route: 058
  2. PREDNISOLONE [Suspect]
     Indication: PRODUCT USED FOR UNKNOWN INDICATION
  3. COLCHICUM [Suspect]
     Indication: PRODUCT USED FOR UNKNOWN INDICATION
  4. ARCOXIA [Suspect]
     Indication: PODAGRA
  5. METHOTREXATE [Concomitant]
  6. VITAMIN B [Concomitant]
  7. ECHINACEA [Concomitant]

REACTIONS (8)
  - ARTHRITIS INFECTIVE [None]
  - ARTHRITIS REACTIVE [None]
  - EYE IRRITATION [None]
  - INFECTION [None]
  - NIGHT SWEATS [None]
  - ONYCHOMYCOSIS [None]
  - RESPIRATORY TRACT INFECTION [None]
  - WEIGHT DECREASED [None]
